FAERS Safety Report 5292457-1 (Version None)
Quarter: 2007Q2

REPORT INFORMATION
  Report Type: 
  Country: None (occurrence: None)
  Receive Date: 20070410
  Receipt Date: 20070330
  Transmission Date: 20071010
  Serious: Yes (Other)
  Sender: FDA-Public Use
  Company Number: US-PFIZER INC-2007005521

PATIENT
  Sex: Female
  Weight: 114 kg

DRUGS (5)
  1. DEPO-PROVERA [Suspect]
     Indication: CONTRACEPTION
     Route: 030
     Dates: start: 20060712, end: 20060712
  2. DEPO-PROVERA [Suspect]
     Route: 030
     Dates: start: 20061011, end: 20061011
  3. DEPO-PROVERA [Suspect]
     Route: 030
     Dates: start: 20070108, end: 20070108
  4. ZOLOFT [Concomitant]
     Dosage: DAILY DOSE:50MG
  5. IMITREX [Concomitant]

REACTIONS (5)
  - BLOOD PRESSURE INCREASED [None]
  - PALPITATIONS [None]
  - PRESYNCOPE [None]
  - SYNCOPE [None]
  - TACHYCARDIA [None]
